FAERS Safety Report 5803175-2 (Version None)
Quarter: 2008Q2

REPORT INFORMATION
  Report Type: 
  Country: None (occurrence: None)
  Receive Date: 20080627
  Receipt Date: 20080324
  Transmission Date: 20081010
  Serious: Yes (Hospitalization)
  Sender: FDA-Public Use
  Company Number: PHEH2008US03088

PATIENT
  Age: 71 Year
  Sex: Female
  Weight: 51.7 kg

DRUGS (4)
  1. RECLAST [Suspect]
     Indication: OSTEOPOROSIS
     Dosage: 5 MG, ONCE YEARLY, INTRAVENOUS
     Route: 042
     Dates: start: 20071019
  2. PLAQUENIL [Concomitant]
  3. GEMFIBROZIL [Concomitant]
  4. CALCIUM (CALCIUM) [Concomitant]

REACTIONS (1)
  - ATRIAL FIBRILLATION [None]
